FAERS Safety Report 15395068 (Version 1)
Quarter: 2018Q3

REPORT INFORMATION
  Report Type: Spontaneous
  Country: US (occurrence: US)
  Receive Date: 20180911
  Receipt Date: 20180911
  Transmission Date: 20181010
  Serious: Yes (Other)
  Sender: FDA-Public Use
  Company Number: None

PATIENT
  Age: 75 Year
  Sex: Female
  Weight: 67.5 kg

DRUGS (8)
  1. TOBRAMYCIN/DEXAME 0.3?0.1% SUP FAL GENERIC FOR TOBRADEX OP 0.3?0.1 SUS [Suspect]
     Active Substance: DEXAMETHASONE\TOBRAMYCIN
     Indication: EYE INFECTION
     Route: 047
     Dates: start: 20180723, end: 20180801
  2. L?THYROXINE [Concomitant]
     Active Substance: LEVOTHYROXINE
  3. 81 MG ASPIRIN [Concomitant]
     Active Substance: ASPIRIN
  4. DETROL LA [Concomitant]
     Active Substance: TOLTERODINE TARTRATE
  5. VITAMIN B12 [Concomitant]
     Active Substance: CYANOCOBALAMIN
  6. FOLIC ACID. [Concomitant]
     Active Substance: FOLIC ACID
  7. CALCIUM WITH D3 [Concomitant]
  8. ATORVASTATIN [Concomitant]
     Active Substance: ATORVASTATIN

REACTIONS (1)
  - Visual impairment [None]

NARRATIVE: CASE EVENT DATE: 20180723
